FAERS Safety Report 10015670 (Version 1)
Quarter: 2014Q1

REPORT INFORMATION
  Report Type: Spontaneous
  Country: US (occurrence: US)
  Receive Date: 20140317
  Receipt Date: 20140317
  Transmission Date: 20141002
  Serious: No
  Sender: FDA-Public Use
  Company Number: US-PFIZER INC-2014076664

PATIENT
  Age: 60 Year
  Sex: Female
  Weight: 92.97 kg

DRUGS (5)
  1. PRISTIQ [Suspect]
     Indication: MAJOR DEPRESSION
     Dosage: 25 MG, DAILY
     Dates: start: 201312
  2. PRISTIQ [Suspect]
     Dosage: 50 MG, DAILY
     Dates: start: 201401, end: 201402
  3. JANUVIA [Concomitant]
     Indication: DIABETES MELLITUS
     Dosage: 50 MG, DAILY
  4. SYNTHROID [Concomitant]
     Indication: THYROID DISORDER
     Dosage: 75 UG, DAILY
  5. HYDROCORTISONE [Concomitant]
     Indication: ADRENAL INSUFFICIENCY
     Dosage: 20MG IN MORNING AND 10MG AT NIGHT

REACTIONS (7)
  - Migraine [Recovered/Resolved]
  - Headache [Recovered/Resolved]
  - Gastrointestinal disorder [Recovered/Resolved]
  - Restlessness [Recovered/Resolved]
  - Gait disturbance [Recovered/Resolved]
  - Pain in extremity [Recovered/Resolved]
  - Blood potassium decreased [Recovered/Resolved]
